FAERS Safety Report 12612920 (Version 1)
Quarter: 2016Q3

REPORT INFORMATION
  Report Type: Report from Study
  Country: US (occurrence: US)
  Receive Date: 20160802
  Receipt Date: 20160802
  Transmission Date: 20161109
  Serious: Yes (Life-Threatening, Hospitalization)
  Sender: FDA-Public Use
  Company Number: US-ROCHE-1303319

PATIENT
  Age: 13 Year
  Sex: Male
  Weight: 57.8 kg

DRUGS (1)
  1. VISMODEGIB [Suspect]
     Active Substance: VISMODEGIB
     Indication: MEDULLOBLASTOMA
     Dosage: DOSING WAS 150-450 MG DAILY BASED ON BODY SURFACE AREA.?LAST ADMINISTERED DATE: 23/OCT/2013
     Route: 048
     Dates: start: 20130926, end: 20131024

REACTIONS (3)
  - Lymphocyte count decreased [Unknown]
  - Dysarthria [Not Recovered/Not Resolved]
  - Pain in extremity [Not Recovered/Not Resolved]

NARRATIVE: CASE EVENT DATE: 20131025
